FAERS Safety Report 5897817-3 (Version None)
Quarter: 2008Q3

REPORT INFORMATION
  Report Type: 
  Country: None (occurrence: None)
  Receive Date: 20080924
  Receipt Date: 20080924
  Transmission Date: 20090109
  Serious: Yes (Hospitalization)
  Sender: FDA-Public Use
  Company Number: None

PATIENT
  Age: 92 Year
  Sex: Female
  Weight: 53 kg

DRUGS (3)
  1. LOPRESSOR [Suspect]
     Indication: HYPERTENSION
     Dosage: 12.5 MG AND 37.5 MG TWICE DAILY PO }THAN 2 MONTHS
     Route: 048
     Dates: start: 20080920, end: 20080921
  2. ARICEPT [Suspect]
     Indication: AMNESIA
     Dosage: 10MG  AT BEDTIME PO, SHORT; 1-2 WEEKS
     Route: 048
  3. ARICEPT [Suspect]
     Indication: DEMENTIA
     Dosage: 10MG  AT BEDTIME PO, SHORT; 1-2 WEEKS
     Route: 048

REACTIONS (1)
  - BRADYCARDIA [None]
